FAERS Safety Report 19408217 (Version 3)
Quarter: 2021Q3

REPORT INFORMATION
  Report Type: Report from Study
  Country: FR (occurrence: FR)
  Receive Date: 20210611
  Receipt Date: 20210909
  Transmission Date: 20211014
  Serious: Yes (Death, Hospitalization)
  Sender: FDA-Public Use
  Company Number: FR-PFIZER INC-2021680354

PATIENT
  Age: 78 Year
  Sex: Female
  Weight: 72 kg

DRUGS (6)
  1. TEMERITDUO [Concomitant]
     Active Substance: HYDROCHLOROTHIAZIDE\NEBIVOLOL HYDROCHLORIDE
     Dosage: UNK
     Dates: start: 2011
  2. CARBOPLATIN. [Suspect]
     Active Substance: CARBOPLATIN
     Indication: ANAL SQUAMOUS CELL CARCINOMA
     Dosage: UNK MILLIGRAM/SQ. METER, AUC 5, CYCLIC (EVERY 4 WEEKS)
     Route: 042
     Dates: start: 20210519, end: 20210519
  3. KARDEGIC [Concomitant]
     Active Substance: ASPIRIN DL-LYSINE
     Dosage: UNK
     Dates: start: 2011
  4. PACLITAXEL. [Suspect]
     Active Substance: PACLITAXEL
     Indication: ANAL SQUAMOUS CELL CARCINOMA
     Dosage: 80 MG/M2, CYCLIC (DAY 1, 8 AND 15) EVERY 4 WEEKS
     Route: 042
     Dates: start: 20210519, end: 20210519
  5. INEXIUM [ESOMEPRAZOLE MAGNESIUM] [Concomitant]
     Active Substance: ESOMEPRAZOLE MAGNESIUM
     Dosage: UNK
     Dates: start: 2011
  6. BLINDED THERAPY [Suspect]
     Active Substance: INVESTIGATIONAL PRODUCT
     Indication: ANAL SQUAMOUS CELL CARCINOMA
     Dosage: UNK, CYCLIC (EVERY 4 WEEKS)
     Route: 042
     Dates: start: 20210519

REACTIONS (1)
  - General physical health deterioration [Not Recovered/Not Resolved]

NARRATIVE: CASE EVENT DATE: 20210526
